FAERS Safety Report 19066993 (Version 3)
Quarter: 2021Q2

REPORT INFORMATION
  Report Type: Spontaneous
  Country: JP (occurrence: JP)
  Receive Date: 20210329
  Receipt Date: 20210627
  Transmission Date: 20210717
  Serious: Yes (Hospitalization, Disabling, Other)
  Sender: FDA-Public Use
  Company Number: JP-009507513-2008JPN001591J

PATIENT
  Age: 73 Year
  Sex: Male
  Weight: 57 kg

DRUGS (4)
  1. KEYTRUDA [Suspect]
     Active Substance: PEMBROLIZUMAB
     Indication: NON-SMALL CELL LUNG CANCER STAGE IV
     Dosage: 200 MILLIGRAM, 1 TIME/3?4 WEEKS
     Route: 041
     Dates: start: 20200108, end: 20200618
  2. PACLITAXEL ALBUMIN [Concomitant]
     Active Substance: PACLITAXEL
     Indication: NON-SMALL CELL LUNG CANCER STAGE IV
     Dosage: 160 MILLIGRAM, 2?3 TIMES/3 WEEKS?4 WEEKS
     Route: 041
     Dates: start: 20200108, end: 20200416
  3. EMEND [Concomitant]
     Active Substance: APREPITANT
     Indication: PROPHYLAXIS OF NAUSEA AND VOMITING
     Dosage: 125 MILLIGRAM, QD
     Route: 048
     Dates: start: 20200108, end: 20200110
  4. CARBOPLATIN. [Concomitant]
     Active Substance: CARBOPLATIN
     Indication: NON-SMALL CELL LUNG CANCER STAGE IV
     Dosage: 650 MILLIGRAM, 1 TIME/3?4 WEEKS
     Route: 041
     Dates: start: 20200108, end: 20200409

REACTIONS (5)
  - Hypoaesthesia [Recovered/Resolved]
  - Off label use [Unknown]
  - Adrenal insufficiency [Not Recovered/Not Resolved]
  - Malignant neoplasm progression [Unknown]
  - Lower respiratory tract infection [Recovering/Resolving]

NARRATIVE: CASE EVENT DATE: 2020
